FAERS Safety Report 8166064-7 (Version None)
Quarter: 2012Q1

REPORT INFORMATION
  Report Type: 
  Country: None (occurrence: None)
  Receive Date: 20120227
  Receipt Date: 20110404
  Transmission Date: 20120608
  Serious: No
  Sender: FDA-Public Use
  Company Number: US-MYLANLABS-2011S1004501

PATIENT
  Age: 20 Year
  Sex: Female
  Weight: 65.77 kg

DRUGS (5)
  1. AMNESTEEM [Suspect]
     Indication: ACNE
     Route: 048
     Dates: start: 20101115, end: 20110118
  2. BACTRIM [Concomitant]
     Indication: URINARY TRACT INFECTION
  3. IBUPROFEN [Concomitant]
  4. AZITHROMYCIN [Concomitant]
     Indication: URINARY TRACT INFECTION
  5. CONTRACEPTIVE [Concomitant]
     Indication: CONTRACEPTION

REACTIONS (2)
  - ASPARTATE AMINOTRANSFERASE INCREASED [None]
  - ALANINE AMINOTRANSFERASE INCREASED [None]
